FAERS Safety Report 5106288-6 (Version None)
Quarter: 2006Q3

REPORT INFORMATION
  Report Type: 
  Country: None (occurrence: None)
  Receive Date: 20060918
  Receipt Date: 20060905
  Transmission Date: 20061208
  Serious: Yes (Death, Hospitalization)
  Sender: FDA-Public Use
  Company Number: US-JNJFOC-20060902604

PATIENT
  Age: 35 Year
  Sex: Female

DRUGS (4)
  1. ACETAMINOPHEN/DIPHENHYDRAMINE [Suspect]
     Indication: SUICIDE ATTEMPT
     Route: 048
  2. NORTRIPTYLINE HCL [Suspect]
     Indication: SUICIDE ATTEMPT
  3. ACTIVATED CHARCOAL [Suspect]
     Indication: DRUG USE FOR UNKNOWN INDICATION
  4. VENLAFAXINE HCL EXTENDED-RELEASE [Suspect]
     Indication: SUICIDE ATTEMPT

REACTIONS (3)
  - COMPLETED SUICIDE [None]
  - MULTIPLE DRUG OVERDOSE INTENTIONAL [None]
  - PNEUMONIA ASPIRATION [None]
